FAERS Safety Report 11002651 (Version 1)
Quarter: 2015Q2

REPORT INFORMATION
  Report Type: Spontaneous
  Country: US (occurrence: US)
  Receive Date: 20150408
  Receipt Date: 20150408
  Transmission Date: 20150821
  Serious: Yes (Other)
  Sender: FDA-Public Use
  Company Number: US-MYLANLABS-2015M1008687

PATIENT

DRUGS (1)
  1. HALOPERIDOL DECANOATE INJECTION USP [Suspect]
     Active Substance: HALOPERIDOL DECANOATE
     Indication: SCHIZOAFFECTIVE DISORDER
     Dosage: 100 MG, Q28D
     Route: 030
     Dates: start: 201401, end: 201502

REACTIONS (2)
  - Product colour issue [None]
  - Injection site abscess [Not Recovered/Not Resolved]

NARRATIVE: CASE EVENT DATE: 201409
